FAERS Safety Report 7523255-3 (Version None)
Quarter: 2011Q2

REPORT INFORMATION
  Report Type: 
  Country: None (occurrence: None)
  Receive Date: 20110603
  Receipt Date: 20110518
  Transmission Date: 20111010
  Serious: Yes (Hospitalization)
  Sender: FDA-Public Use
  Company Number: A0787767A

PATIENT
  Age: 47 Year
  Sex: Male

DRUGS (4)
  1. STARLIX [Concomitant]
  2. ALTACE [Concomitant]
  3. AVANDIA [Suspect]
     Dosage: 4MG TWICE PER DAY
     Route: 048
     Dates: start: 20010516, end: 20040701
  4. GLUCOPHAGE [Concomitant]

REACTIONS (4)
  - CARDIAC FAILURE CONGESTIVE [None]
  - MYOCARDIAL ISCHAEMIA [None]
  - ISCHAEMIC CARDIOMYOPATHY [None]
  - MYOCARDIAL INFARCTION [None]
